FAERS Safety Report 18905171 (Version 3)
Quarter: 2022Q1

REPORT INFORMATION
  Report Type: Report from Study
  Country: US (occurrence: US)
  Receive Date: 20210217
  Receipt Date: 20220228
  Transmission Date: 20220423
  Serious: No
  Sender: FDA-Public Use
  Company Number: NVSC2021US037391

PATIENT
  Age: 32 Year
  Sex: Female

DRUGS (1)
  1. GILENYA [Suspect]
     Active Substance: FINGOLIMOD HYDROCHLORIDE
     Indication: Multiple sclerosis
     Dosage: 0.5 MG, QD
     Route: 048
     Dates: start: 20210215

REACTIONS (5)
  - Dizziness [Recovered/Resolved]
  - Back pain [Unknown]
  - Vitamin D decreased [Unknown]
  - Blood sodium increased [Unknown]
  - Dehydration [Unknown]

NARRATIVE: CASE EVENT DATE: 20210215
